FAERS Safety Report 8063887-X (Version None)
Quarter: 2012Q1

REPORT INFORMATION
  Report Type: 
  Country: None (occurrence: None)
  Receive Date: 20120123
  Receipt Date: 20120113
  Transmission Date: 20120608
  Serious: Yes (Other)
  Sender: FDA-Public Use
  Company Number: US-PURDUE-USA-2012-0080898

PATIENT
  Sex: Female

DRUGS (4)
  1. ROXICODONE [Concomitant]
     Dosage: 15 MG, FOUR TIMES DAILY
  2. OXYCONTIN [Suspect]
     Dosage: 60 MG, Q12H
  3. ROXICODONE [Concomitant]
     Indication: PAIN
     Dosage: 30 MG, UP TO FIVE TIMES DAILY AS NEEDED
  4. OXYCONTIN [Suspect]
     Indication: PAIN
     Dosage: 20 MG, Q12H
     Route: 048

REACTIONS (6)
  - INTERVERTEBRAL DISC PROTRUSION [None]
  - PAIN [None]
  - KNEE OPERATION [None]
  - INADEQUATE ANALGESIA [None]
  - SHOULDER OPERATION [None]
  - JOINT SURGERY [None]
